FAERS Safety Report 24686824 (Version 2)
Quarter: 2024Q4

REPORT INFORMATION
  Report Type: Spontaneous
  Country: CN (occurrence: CN)
  Receive Date: 20241202
  Receipt Date: 20241226
  Transmission Date: 20250115
  Serious: Yes (Life-Threatening)
  Sender: JOHNSON AND JOHNSON
  Company Number: CN-JNJFOC-20241173352

PATIENT

DRUGS (3)
  1. DARZALEX [Suspect]
     Active Substance: DARATUMUMAB
     Indication: Plasma cell myeloma
     Dosage: DARZALEX, 400MG/20ML/VIAL
     Route: 065
  2. LENALIDOMIDE [Suspect]
     Active Substance: LENALIDOMIDE
     Route: 065
  3. DEXAMETHASONE [Suspect]
     Active Substance: DEXAMETHASONE
     Route: 065

REACTIONS (3)
  - Influenza [Recovered/Resolved]
  - Pneumonia [Recovered/Resolved]
  - Respiratory failure [Recovered/Resolved]
